FAERS Safety Report 18118084 (Version 3)
Quarter: 2020Q3

REPORT INFORMATION
  Report Type: Spontaneous
  Country: US (occurrence: US)
  Receive Date: 20200806
  Receipt Date: 20200909
  Transmission Date: 20201103
  Serious: Yes (Other)
  Sender: FDA-Public Use
  Company Number: US-BAYER-2020-151646

PATIENT
  Age: 16 Year
  Sex: Male

DRUGS (6)
  1. KOGENATE FS [Suspect]
     Active Substance: ANTIHEMOPHILIC FACTOR, HUMAN RECOMBINANT
     Dosage: 1000 U
     Route: 042
  2. KOGENATE FS [Suspect]
     Active Substance: ANTIHEMOPHILIC FACTOR, HUMAN RECOMBINANT
     Dosage: ADDITIONAL 2000 U JUST AS A PRECAUTION BY JEMATOLOGIST
     Dates: start: 20200720
  3. KOGENATE FS [Suspect]
     Active Substance: ANTIHEMOPHILIC FACTOR, HUMAN RECOMBINANT
     Dosage: 3000U WAS GIVEN AS WELL AS PRECAUTION
     Dates: start: 20200726
  4. KOGENATE FS [Suspect]
     Active Substance: ANTIHEMOPHILIC FACTOR, HUMAN RECOMBINANT
     Dosage: 3000 U FOR THE INJURY TO ANKLE
     Dates: start: 20200719
  5. KOGENATE FS [Suspect]
     Active Substance: ANTIHEMOPHILIC FACTOR, HUMAN RECOMBINANT
     Dosage: 2000 U FOR THE REINJURED ANKLE
     Dates: start: 20200723
  6. KOGENATE FS [Suspect]
     Active Substance: ANTIHEMOPHILIC FACTOR, HUMAN RECOMBINANT
     Dosage: 2000 U WAS GIVEN IN THE EMERGENCY ROOM
     Dates: start: 20200725

REACTIONS (3)
  - Joint injury [None]
  - Epiphyseal fracture [None]
  - Joint injury [None]

NARRATIVE: CASE EVENT DATE: 20200719
